FAERS Safety Report 14893897 (Version 2)
Quarter: 2018Q2

REPORT INFORMATION
  Report Type: Report from Study
  Country: US (occurrence: US)
  Receive Date: 20180514
  Receipt Date: 20180529
  Transmission Date: 20180711
  Serious: Yes (Hospitalization)
  Sender: FDA-Public Use
  Company Number: US-ACTELION-A-NJ2016-142262

PATIENT
  Age: 71 Year
  Sex: Female
  Weight: 77.55 kg

DRUGS (7)
  1. SILDENAFIL. [Concomitant]
     Active Substance: SILDENAFIL
     Dosage: 20 MG, TID
     Dates: start: 2014
  2. LASIX [Concomitant]
     Active Substance: FUROSEMIDE
  3. REVATIO [Concomitant]
     Active Substance: SILDENAFIL CITRATE
     Dosage: 20 MG, TID
     Dates: start: 2014
  4. REMODULIN [Concomitant]
     Active Substance: TREPROSTINIL
     Dosage: UNK
     Dates: start: 2010
  5. WARFARIN [Concomitant]
     Active Substance: WARFARIN
  6. OPSUMIT [Suspect]
     Active Substance: MACITENTAN
     Indication: PULMONARY ARTERIAL HYPERTENSION
     Dosage: 10 MG, QD
     Route: 048
     Dates: start: 20140723
  7. DILTIAZEM. [Concomitant]
     Active Substance: DILTIAZEM

REACTIONS (19)
  - Dyspnoea [Recovered/Resolved]
  - Right ventricular ejection fraction decreased [Recovered/Resolved]
  - Polyuria [Recovered/Resolved]
  - Headache [Unknown]
  - Weight increased [Recovered/Resolved]
  - Atrial fibrillation [Unknown]
  - Hypoxia [Recovered/Resolved]
  - Catheter site pain [Recovering/Resolving]
  - Oedema [Recovered/Resolved]
  - Pulmonary arterial hypertension [Unknown]
  - Device dislocation [Recovered/Resolved]
  - Pleural effusion [Recovered/Resolved]
  - Lower respiratory tract infection [Unknown]
  - Pulmonary oedema [Recovered/Resolved]
  - Pulmonary arterial pressure decreased [Recovered/Resolved]
  - Condition aggravated [Recovered/Resolved]
  - Device related infection [Recovered/Resolved]
  - Streptococcus test positive [Recovered/Resolved]
  - Catheter site erythema [Recovering/Resolving]

NARRATIVE: CASE EVENT DATE: 20171106
